FAERS Safety Report 22161183 (Version 3)
Quarter: 2024Q1

REPORT INFORMATION
  Report Type: Spontaneous
  Country: JP (occurrence: None)
  Receive Date: 20230331
  Receipt Date: 20240213
  Transmission Date: 20240410
  Serious: Yes (Other)
  Sender: FDA-Public Use
  Company Number: 2023A072458

PATIENT
  Age: 63 Year
  Sex: Female
  Weight: 47 kg

DRUGS (12)
  1. LYNPARZA [Suspect]
     Active Substance: OLAPARIB
     Indication: Ovarian cancer
     Route: 048
     Dates: start: 20180719, end: 20180725
  2. LYNPARZA [Suspect]
     Active Substance: OLAPARIB
     Indication: Malignant peritoneal neoplasm
     Route: 048
     Dates: start: 20180719, end: 20180725
  3. LYNPARZA [Suspect]
     Active Substance: OLAPARIB
     Indication: Ovarian cancer
     Route: 048
     Dates: start: 20180820, end: 20181118
  4. LYNPARZA [Suspect]
     Active Substance: OLAPARIB
     Indication: Malignant peritoneal neoplasm
     Route: 048
     Dates: start: 20180820, end: 20181118
  5. LYNPARZA [Suspect]
     Active Substance: OLAPARIB
     Indication: Ovarian cancer
     Route: 048
     Dates: start: 20190104, end: 20190407
  6. LYNPARZA [Suspect]
     Active Substance: OLAPARIB
     Indication: Malignant peritoneal neoplasm
     Route: 048
     Dates: start: 20190104, end: 20190407
  7. LYNPARZA [Suspect]
     Active Substance: OLAPARIB
     Indication: Ovarian cancer
     Route: 048
     Dates: start: 20190415, end: 20190526
  8. LYNPARZA [Suspect]
     Active Substance: OLAPARIB
     Indication: Malignant peritoneal neoplasm
     Route: 048
     Dates: start: 20190415, end: 20190526
  9. LYNPARZA [Suspect]
     Active Substance: OLAPARIB
     Indication: Ovarian cancer
     Route: 048
     Dates: start: 20190704, end: 202303
  10. LYNPARZA [Suspect]
     Active Substance: OLAPARIB
     Indication: Malignant peritoneal neoplasm
     Route: 048
     Dates: start: 20190704, end: 202303
  11. ELDECALCITOL [Concomitant]
     Active Substance: ELDECALCITOL
     Dosage: UNKNOWN
  12. AMLODIPINE [Concomitant]
     Active Substance: AMLODIPINE BESYLATE
     Dosage: UNKNOWN

REACTIONS (1)
  - Interstitial lung disease [Recovered/Resolved]

NARRATIVE: CASE EVENT DATE: 20230302
